FAERS Safety Report 7954117-5 (Version None)
Quarter: 2011Q4

REPORT INFORMATION
  Report Type: 
  Country: None (occurrence: None)
  Receive Date: 20111202
  Receipt Date: 20111121
  Transmission Date: 20120403
  Serious: Yes (Other)
  Sender: FDA-Public Use
  Company Number: US-JNJFOC-20111109213

PATIENT
  Sex: Male
  Weight: 105.24 kg

DRUGS (8)
  1. METHOTREXATE [Concomitant]
     Indication: RHEUMATOID ARTHRITIS
     Route: 048
     Dates: start: 19880101
  2. ANDROGEL [Concomitant]
     Indication: HORMONE REPLACEMENT THERAPY
     Route: 061
     Dates: start: 20010101
  3. PROTONIX [Concomitant]
     Indication: ULCER
     Route: 048
     Dates: start: 20110901
  4. REMICADE [Suspect]
     Indication: RHEUMATOID ARTHRITIS
     Route: 042
  5. PREDNISONE TAB [Concomitant]
     Indication: RHEUMATOID ARTHRITIS
     Route: 048
     Dates: start: 19850101
  6. NEURONTIN [Concomitant]
     Indication: NERVE COMPRESSION
     Dosage: IN THE AM AND IN THE PM
     Route: 048
     Dates: start: 19960101
  7. FOLIC ACID [Concomitant]
     Indication: RHEUMATOID ARTHRITIS
     Route: 048
     Dates: start: 19850101
  8. NAPROSYN [Concomitant]
     Indication: RHEUMATOID ARTHRITIS
     Route: 048
     Dates: start: 19850101

REACTIONS (6)
  - SEASONAL ALLERGY [None]
  - DRUG INEFFECTIVE [None]
  - OSTEOPOROSIS [None]
  - DEPRESSION [None]
  - FIBROMYALGIA [None]
  - MALAISE [None]
